FAERS Safety Report 4526711-5 (Version None)
Quarter: 2004Q4

REPORT INFORMATION
  Report Type: 
  Country: None (occurrence: None)
  Receive Date: 20041214
  Receipt Date: 20041208
  Transmission Date: 20050328
  Serious: Yes (Death)
  Sender: FDA-Public Use
  Company Number: US-JNJFOC-20041202395

PATIENT
  Age: 74 Year
  Sex: Female

DRUGS (5)
  1. DURAGESIC [Suspect]
     Indication: CANCER PAIN
     Route: 062
     Dates: start: 20040908, end: 20040909
  2. ROXICET [Concomitant]
  3. ROXICET [Concomitant]
     Indication: PAIN
     Dosage: 1 EVERY 4 HOURS
  4. LIPITOR [Concomitant]
  5. TYLENOL (CAPLET) [Concomitant]

REACTIONS (3)
  - BRAIN DAMAGE [None]
  - CARDIAC ARREST [None]
  - COMA [None]
